FAERS Safety Report 6454467-8 (Version None)
Quarter: 2009Q4

REPORT INFORMATION
  Report Type: 
  Country: None (occurrence: None)
  Receive Date: 20091124
  Receipt Date: 20091113
  Transmission Date: 20100525
  Serious: Yes (Other)
  Sender: FDA-Public Use
  Company Number: US-JNJCH-2009029951

PATIENT
  Age: 73 Year
  Sex: Female
  Weight: 99.8 kg

DRUGS (4)
  1. BENADRYL ALLERGY + COLD KAPGELS [Suspect]
     Indication: HYPERSENSITIVITY
     Dosage: TEXT:TWO TABLETS EVERY FOUR HOURS
     Route: 048
     Dates: start: 20091106, end: 20091113
  2. DRUG, UNSPECIFIED [Concomitant]
     Indication: HYPERTENSION
     Dosage: TEXT:360MG ONCE A DAY
     Route: 065
  3. METOPROLOL TARTRATE [Concomitant]
     Indication: HYPERTENSION
     Dosage: TEXT:25MG TWICE PER DAY
     Route: 065
     Dates: start: 20090101
  4. PANTOPRAZOLE [Concomitant]
     Indication: GASTROOESOPHAGEAL REFLUX DISEASE
     Dosage: TEXT:40 MG ONCE PER DAY
     Route: 065
     Dates: start: 20090101

REACTIONS (2)
  - FEELING ABNORMAL [None]
  - HALLUCINATION, VISUAL [None]
